FAERS Safety Report 20835274 (Version 1)
Quarter: 2022Q2

REPORT INFORMATION
  Report Type: Spontaneous
  Country: MM (occurrence: MM)
  Receive Date: 20220516
  Receipt Date: 20220516
  Transmission Date: 20220721
  Serious: Yes (Other)
  Sender: FDA-Public Use
  Company Number: MM-BAYER-2021-169262

PATIENT
  Age: 28 Year
  Sex: Female
  Weight: 89 kg

DRUGS (1)
  1. LEVONORGESTREL [Suspect]
     Active Substance: LEVONORGESTREL
     Indication: Contraception
     Route: 059
     Dates: start: 20170613, end: 20210607

REACTIONS (3)
  - Pregnancy with implant contraceptive [Unknown]
  - Drug ineffective [Unknown]
  - Amenorrhoea [Unknown]

NARRATIVE: CASE EVENT DATE: 20170601
